FAERS Safety Report 21227217 (Version 1)
Quarter: 2022Q3

REPORT INFORMATION
  Report Type: Spontaneous
  Country: US (occurrence: None)
  Receive Date: 20220817
  Receipt Date: 20220817
  Transmission Date: 20221027
  Serious: Yes (Hospitalization)
  Sender: FDA-Public Use
  Company Number: None

PATIENT
  Age: 71 Year
  Sex: Female

DRUGS (1)
  1. HUMIRA [Suspect]
     Active Substance: ADALIMUMAB
     Dosage: OTHER FREQUENCY : Q2W;?
     Route: 058
     Dates: start: 20200203

REACTIONS (2)
  - Hip fracture [None]
  - Lower limb fracture [None]

NARRATIVE: CASE EVENT DATE: 20220810
